FAERS Safety Report 17587059 (Version 1)
Quarter: 2020Q1

REPORT INFORMATION
  Report Type: Spontaneous
  Country: DE (occurrence: DE)
  Receive Date: 20200326
  Receipt Date: 20200326
  Transmission Date: 20200409
  Serious: Yes (Other)
  Sender: FDA-Public Use
  Company Number: DE-ALLERGAN-2012532US

PATIENT
  Sex: Female

DRUGS (1)
  1. CARIPRAZINE HCL - BP [Suspect]
     Active Substance: CARIPRAZINE HYDROCHLORIDE
     Indication: PRODUCT USED FOR UNKNOWN INDICATION
     Dosage: 3 MG, QD

REACTIONS (3)
  - Gaze palsy [Recovered/Resolved]
  - Salivary hypersecretion [Recovered/Resolved]
  - Drug dose titration not performed [Unknown]
